FAERS Safety Report 7347476-8 (Version None)
Quarter: 2011Q1

REPORT INFORMATION
  Report Type: 
  Country: None (occurrence: None)
  Receive Date: 20110311
  Receipt Date: 20100914
  Transmission Date: 20110831
  Serious: Yes (Hospitalization)
  Sender: FDA-Public Use
  Company Number: US-BAYER-201025785NA

PATIENT
  Sex: Female
  Weight: 72.562 kg

DRUGS (3)
  1. YASMIN [Suspect]
     Route: 048
  2. YAZ [Suspect]
     Dosage: UNK
     Route: 048
     Dates: start: 20070101, end: 20080101
  3. OCELLA [Suspect]
     Route: 048

REACTIONS (4)
  - CHOLECYSTITIS CHRONIC [None]
  - CHOLELITHIASIS OBSTRUCTIVE [None]
  - PELVIC INFLAMMATORY DISEASE [None]
  - CHOLECYSTITIS ACUTE [None]
